FAERS Safety Report 12552672 (Version 3)
Quarter: 2017Q3

REPORT INFORMATION
  Report Type: Spontaneous
  Country: GB (occurrence: GB)
  Receive Date: 20160713
  Receipt Date: 20170818
  Transmission Date: 20171127
  Serious: Yes (Hospitalization, Other)
  Sender: FDA-Public Use
  Company Number: GB-PFIZER INC-2016330161

PATIENT
  Age: 49 Year
  Sex: Female

DRUGS (8)
  1. METOCLOPRAMIDE. [Suspect]
     Active Substance: METOCLOPRAMIDE
     Dosage: UNK
  2. NEULASTA [Suspect]
     Active Substance: PEGFILGRASTIM
     Dosage: UNK
  3. EPIRUBICIN HCL [Suspect]
     Active Substance: EPIRUBICIN HYDROCHLORIDE
     Indication: CHEMOTHERAPY
     Dosage: 1 IN 1, CYCLIC
  4. ALOXI [Suspect]
     Active Substance: PALONOSETRON HYDROCHLORIDE
     Indication: PROPHYLAXIS OF NAUSEA AND VOMITING
     Dosage: UNK
  5. DEXAMETHASONE SODIUM PHOSPHATE. [Suspect]
     Active Substance: DEXAMETHASONE SODIUM PHOSPHATE
     Dosage: UNK
     Route: 048
  6. FLUOROURACIL. [Suspect]
     Active Substance: FLUOROURACIL
     Indication: CHEMOTHERAPY
     Dosage: UNK UNK, CYCLIC
  7. CYCLOPHOSPHAMIDE. [Suspect]
     Active Substance: CYCLOPHOSPHAMIDE
     Indication: CHEMOTHERAPY
     Dosage: 1 IN 1, CYCLIC
  8. APREPITANT. [Suspect]
     Active Substance: APREPITANT
     Dosage: UNK
     Route: 048

REACTIONS (8)
  - Gastroenteritis [Unknown]
  - Nausea [Unknown]
  - Neutropenia [Unknown]
  - Diarrhoea [Unknown]
  - Asthenia [Unknown]
  - Alopecia [Unknown]
  - Vomiting [Unknown]
  - Injection site mass [Recovered/Resolved]
